FAERS Safety Report 6335058-6 (Version None)
Quarter: 2009Q3

REPORT INFORMATION
  Report Type: 
  Country: None (occurrence: None)
  Receive Date: 20090831
  Receipt Date: 20090824
  Transmission Date: 20100115
  Serious: Yes (Other)
  Sender: FDA-Public Use
  Company Number: A0801630A

PATIENT
  Age: 40 Year
  Sex: Male

DRUGS (2)
  1. LAMICTAL [Suspect]
     Indication: DEPRESSION
     Dosage: 50MG PER DAY
     Route: 048
     Dates: start: 20090601, end: 20090101
  2. MULTIPLE MEDICATIONS [Concomitant]

REACTIONS (1)
  - SUICIDAL IDEATION [None]
